FAERS Safety Report 21674706 (Version 1)
Quarter: 2022Q4

REPORT INFORMATION
  Report Type: Spontaneous
  Country: US (occurrence: US)
  Receive Date: 20221202
  Receipt Date: 20221202
  Transmission Date: 20230112
  Serious: No
  Sender: FDA-Public Use
  Company Number: US-SANOFI-01385719

PATIENT
  Age: 76 Year
  Sex: Female

DRUGS (4)
  1. LANTUS SOLOSTAR [Suspect]
     Active Substance: INSULIN GLARGINE
     Indication: Type 2 diabetes mellitus
     Dosage: DRUG TREATMENT DURATION:10 YEARS AGO
  2. LANTUS SOLOSTAR [Suspect]
     Active Substance: INSULIN GLARGINE
     Dosage: 18 IU, QD
  3. OZEMPIC [Suspect]
     Active Substance: SEMAGLUTIDE
  4. EMPAGLIFLOZIN [Suspect]
     Active Substance: EMPAGLIFLOZIN
     Dosage: UNK

REACTIONS (8)
  - Nausea [Unknown]
  - Illness [Unknown]
  - Weight decreased [Unknown]
  - Injection site pain [Unknown]
  - Blood glucose decreased [Unknown]
  - Malaise [Unknown]
  - Tremor [Unknown]
  - Feeling abnormal [Unknown]
